FAERS Safety Report 23432496 (Version 1)
Quarter: 2024Q1

REPORT INFORMATION
  Report Type: Spontaneous
  Country: CN (occurrence: CN)
  Receive Date: 20240123
  Receipt Date: 20240123
  Transmission Date: 20240410
  Serious: Yes (Other)
  Sender: FDA-Public Use
  Company Number: None

PATIENT
  Age: 48 Year
  Sex: Male
  Weight: 53.8 kg

DRUGS (2)
  1. CERNEVIT [Suspect]
     Active Substance: VITAMINS
     Indication: Vitamin supplementation
     Dosage: 5 ML CONTINUOUS DRIP ONCE DAILY (5ML/VIAL), DOSAGE FORM: POWDER INJECTION
     Route: 041
     Dates: start: 20240110, end: 20240112
  2. DEXTROSE [Suspect]
     Active Substance: DEXTROSE\DEXTROSE MONOHYDRATE
     Indication: Medication dilution
     Dosage: 250 ML ONCE DAILY, DOSAGE FORM: INJECTION, USED TO DILUTE CERNEVIT
     Route: 041
     Dates: start: 20240110, end: 20240112

REACTIONS (2)
  - Pruritus [Recovered/Resolved]
  - Rash [Recovering/Resolving]

NARRATIVE: CASE EVENT DATE: 20240112
